FAERS Safety Report 5430739-0 (Version None)
Quarter: 2007Q3

REPORT INFORMATION
  Report Type: 
  Country: None (occurrence: None)
  Receive Date: 20070830
  Receipt Date: 20061106
  Transmission Date: 20080115
  Serious: No
  Sender: FDA-Public Use
  Company Number: A0626374A

PATIENT
  Age: 49 Year
  Sex: Male

DRUGS (2)
  1. WELLBUTRIN XL [Suspect]
     Indication: DEPRESSION
     Dosage: 300MG PER DAY
     Route: 048
     Dates: start: 20060927
  2. LAMICTAL [Concomitant]

REACTIONS (1)
  - TINNITUS [None]
